FAERS Safety Report 6043684-7 (Version None)
Quarter: 2009Q1

REPORT INFORMATION
  Report Type: 
  Country: None (occurrence: None)
  Receive Date: 20090115
  Receipt Date: 20090115
  Transmission Date: 20090719
  Serious: Yes (Hospitalization)
  Sender: FDA-Public Use
  Company Number: None

PATIENT
  Age: 84 Year
  Weight: 56 kg

DRUGS (2)
  1. COUMADIN [Suspect]
     Dosage: DAILY PO
  2. PLAVIX [Suspect]
     Dosage: 75 MG DAILY PO
     Route: 048

REACTIONS (2)
  - CENTRAL-ALVEOLAR HYPOVENTILATION [None]
  - EPISTAXIS [None]
